FAERS Safety Report 15233230 (Version 1)
Quarter: 2018Q3

REPORT INFORMATION
  Report Type: Spontaneous
  Country: US (occurrence: US)
  Receive Date: 20180709
  Receipt Date: 20180709
  Transmission Date: 20181010
  Serious: No
  Sender: FDA-Public Use
  Company Number: None

PATIENT
  Sex: Female
  Weight: 108.86 kg

DRUGS (2)
  1. FORTEO [Suspect]
     Active Substance: TERIPARATIDE
     Indication: OSTEOPOROSIS
     Dosage: ?          OTHER STRENGTH:600/2.4 UG/ML;?
     Route: 058
     Dates: start: 201807
  2. TYMLOS [Suspect]
     Active Substance: ABALOPARATIDE
     Dosage: ?          OTHER STRENGTH:600/2.4 UG/ML;?
     Route: 058

REACTIONS (4)
  - Joint swelling [None]
  - Weight increased [None]
  - Peripheral swelling [None]
  - Abdominal distension [None]
